FAERS Safety Report 5830439-9 (Version None)
Quarter: 2008Q3

REPORT INFORMATION
  Report Type: 
  Country: None (occurrence: None)
  Receive Date: 20080801
  Receipt Date: 20080724
  Transmission Date: 20090109
  Serious: Yes (Other)
  Sender: FDA-Public Use
  Company Number: CA-AMGEN-QUU285350

PATIENT
  Sex: Male

DRUGS (7)
  1. ENBREL [Suspect]
     Indication: PSORIASIS
     Route: 058
     Dates: start: 20070315
  2. ZYPREXA [Concomitant]
  3. REMERON [Concomitant]
  4. DESIPRAMINE HCL [Concomitant]
  5. PROPRANOLOL [Concomitant]
  6. PREVACID [Concomitant]
  7. LIPITOR [Concomitant]

REACTIONS (6)
  - ANXIETY [None]
  - HEADACHE [None]
  - INSOMNIA [None]
  - MYALGIA [None]
  - PHOTOPHOBIA [None]
  - PSORIASIS [None]
